FAERS Safety Report 4950588-7 (Version None)
Quarter: 2006Q1

REPORT INFORMATION
  Report Type: 
  Country: None (occurrence: None)
  Receive Date: 20060315
  Receipt Date: 20060308
  Transmission Date: 20060701
  Serious: Yes (Death, Hospitalization, Other)
  Sender: FDA-Public Use
  Company Number: MEDI-0004104

PATIENT
  Age: 5 Month
  Sex: Male
  Weight: 3.8 kg

DRUGS (8)
  1. SYNAGIS [Suspect]
     Indication: ANTIVIRAL PROPHYLAXIS
     Dosage: SEE IMAGE
     Route: 030
     Dates: start: 20051017, end: 20051117
  2. SYNAGIS [Suspect]
     Indication: ANTIVIRAL PROPHYLAXIS
     Dosage: SEE IMAGE
     Route: 030
     Dates: start: 20051221, end: 20051221
  3. SYNAGIS [Suspect]
     Indication: ANTIVIRAL PROPHYLAXIS
     Dosage: SEE IMAGE
     Route: 030
     Dates: start: 20051017
  4. SPIRONOLACTONE [Concomitant]
  5. BUDESONIDE [Concomitant]
  6. SALMETEROL [Concomitant]
  7. INFANRIX QUINTA (DIPHTHERIA TOXOID, TETANUS TOXOID, POLIOVIRUS VACCINE [Concomitant]
  8. PREVENAR (PNEUMOCOCCAL CONJUGATE VACCINE) [Concomitant]

REACTIONS (5)
  - AGITATION [None]
  - CARDIO-RESPIRATORY ARREST [None]
  - HYPERHIDROSIS [None]
  - OXYGEN SATURATION DECREASED [None]
  - RESPIRATORY DISTRESS [None]
